FAERS Safety Report 4632608-2 (Version None)
Quarter: 2005Q2

REPORT INFORMATION
  Report Type: 
  Country: None (occurrence: None)
  Receive Date: 20050408
  Receipt Date: 20050401
  Transmission Date: 20051028
  Serious: Yes (Death)
  Sender: FDA-Public Use
  Company Number: 05-02-0218

PATIENT
  Age: 43 Year
  Sex: Male
  Weight: 126.1 kg

DRUGS (2)
  1. CLOZAPINE [Suspect]
     Indication: SCHIZOAFFECTIVE DISORDER
     Dosage: 200MG BID ORAL
     Route: 048
     Dates: start: 20010301, end: 20050111
  2. WARFARIN SODIUM [Concomitant]

REACTIONS (3)
  - ATHEROSCLEROSIS [None]
  - CONGESTIVE CARDIOMYOPATHY [None]
  - EMPHYSEMA [None]
